FAERS Safety Report 12398971 (Version 3)
Quarter: 2018Q4

REPORT INFORMATION
  Report Type: Spontaneous
  Country: US (occurrence: US)
  Receive Date: 20160524
  Receipt Date: 20181120
  Transmission Date: 20190204
  Serious: Yes (Other)
  Sender: FDA-Public Use
  Company Number: US-BAYER-2016-099154

PATIENT
  Sex: Female

DRUGS (2)
  1. MIRENA [Suspect]
     Active Substance: LEVONORGESTREL
     Indication: GENITAL HAEMORRHAGE
     Route: 015
  2. MIRENA [Suspect]
     Active Substance: LEVONORGESTREL
     Indication: DYSMENORRHOEA

REACTIONS (11)
  - Genital haemorrhage [Not Recovered/Not Resolved]
  - Vaginal haemorrhage [Unknown]
  - Tooth disorder [Unknown]
  - Menorrhagia [Unknown]
  - Pelvic pain [Not Recovered/Not Resolved]
  - Dysmenorrhoea [Unknown]
  - Migraine [Unknown]
  - Drug ineffective [Unknown]
  - Dyspareunia [Unknown]
  - Iron deficiency anaemia [Not Recovered/Not Resolved]
  - Abdominal pain [Not Recovered/Not Resolved]

NARRATIVE: CASE EVENT DATE: 2007
